FAERS Safety Report 15693327 (Version 2)
Quarter: 2018Q4

REPORT INFORMATION
  Report Type: Spontaneous
  Country: US (occurrence: US)
  Receive Date: 20181206
  Receipt Date: 20181228
  Transmission Date: 20190205
  Serious: Yes (Other)
  Sender: FDA-Public Use
  Company Number: US-ABBVIE-18K-163-2581104-00

PATIENT
  Sex: Male

DRUGS (16)
  1. RITUXAN [Suspect]
     Active Substance: RITUXIMAB
     Indication: ARTHRITIS ENTEROPATHIC
     Route: 065
  2. HUMIRA [Suspect]
     Active Substance: ADALIMUMAB
     Indication: ARTHRITIS ENTEROPATHIC
     Route: 058
  3. ENBREL [Suspect]
     Active Substance: ETANERCEPT
     Indication: ARTHRITIS ENTEROPATHIC
     Route: 065
     Dates: start: 201705, end: 201710
  4. REMICADE [Suspect]
     Active Substance: INFLIXIMAB
     Indication: ARTHRITIS ENTEROPATHIC
     Route: 048
     Dates: start: 201801, end: 201807
  5. HUMIRA [Suspect]
     Active Substance: ADALIMUMAB
     Indication: ARTHRITIS ENTEROPATHIC
  6. PREDNISONE. [Suspect]
     Active Substance: PREDNISONE
     Indication: ARTHRITIS ENTEROPATHIC
     Route: 065
  7. PREDNISONE. [Suspect]
     Active Substance: PREDNISONE
     Indication: ARTHRITIS ENTEROPATHIC
  8. RITUXAN [Suspect]
     Active Substance: RITUXIMAB
     Indication: ARTHRITIS ENTEROPATHIC
  9. ORENCIA [Suspect]
     Active Substance: ABATACEPT
     Indication: ARTHRITIS ENTEROPATHIC
     Route: 065
  10. MTX [Suspect]
     Active Substance: METHOTREXATE SODIUM
     Indication: ARTHRITIS ENTEROPATHIC
     Route: 048
     Dates: start: 201710
  11. ORENCIA [Suspect]
     Active Substance: ABATACEPT
     Indication: ARTHRITIS ENTEROPATHIC
  12. MTX [Suspect]
     Active Substance: METHOTREXATE SODIUM
     Indication: ARTHRITIS ENTEROPATHIC
  13. REMICADE [Suspect]
     Active Substance: INFLIXIMAB
     Indication: ARTHRITIS ENTEROPATHIC
  14. XELJANZ [Concomitant]
     Active Substance: TOFACITINIB CITRATE
     Indication: PRODUCT USED FOR UNKNOWN INDICATION
  15. RASUVO [Concomitant]
     Active Substance: METHOTREXATE SODIUM
     Indication: PRODUCT USED FOR UNKNOWN INDICATION
     Dates: start: 20180531
  16. ENBREL [Suspect]
     Active Substance: ETANERCEPT
     Indication: ARTHRITIS ENTEROPATHIC
     Route: 065
     Dates: end: 201705

REACTIONS (4)
  - Ankylosing spondylitis [Unknown]
  - Drug ineffective [Unknown]
  - Crohn^s disease [Unknown]
  - Myalgia [Unknown]
